FAERS Safety Report 8334729-X (Version None)
Quarter: 2012Q2

REPORT INFORMATION
  Report Type: 
  Country: None (occurrence: None)
  Receive Date: 20120503
  Receipt Date: 20120418
  Transmission Date: 20120825
  Serious: Yes (Other)
  Sender: FDA-Public Use
  Company Number: CN-JNJFOC-20120501283

PATIENT
  Sex: Male
  Weight: 57 kg

DRUGS (3)
  1. MICONAZOLE NITRATE [Suspect]
     Indication: TINEA CAPITIS
     Route: 061
     Dates: start: 20110826, end: 20110827
  2. KETOCONAZOLE [Suspect]
     Indication: TINEA CAPITIS
     Route: 048
  3. MICONAZOLE NITRATE [Suspect]
     Route: 061

REACTIONS (3)
  - PRURITUS [None]
  - ERYTHEMA [None]
  - URTICARIA [None]
